FAERS Safety Report 5565352-8 (Version None)
Quarter: 2007Q4

REPORT INFORMATION
  Report Type: 
  Country: None (occurrence: None)
  Receive Date: 20071213
  Receipt Date: 20071203
  Transmission Date: 20080405
  Serious: Yes (Other)
  Sender: FDA-Public Use
  Company Number: 2007BI022230

PATIENT
  Age: 51 Year
  Sex: Female

DRUGS (1)
  1. NATALIZUMAB [Suspect]
     Indication: MULTIPLE SCLEROSIS
     Dosage: 300 MG;QM;IV
     Route: 042
     Dates: start: 20061106

REACTIONS (4)
  - DYSPHAGIA [None]
  - MYCOBACTERIUM AVIUM COMPLEX INFECTION [None]
  - OPPORTUNISTIC INFECTION [None]
  - RESPIRATORY DISORDER [None]
